FAERS Safety Report 10239414 (Version 1)
Quarter: 2014Q2

REPORT INFORMATION
  Report Type: Spontaneous
  Country: US (occurrence: US)
  Receive Date: 20140616
  Receipt Date: 20140616
  Transmission Date: 20141212
  Serious: Yes (Death, Other)
  Sender: FDA-Public Use
  Company Number: US-TEVA-487648USA

PATIENT
  Sex: Male

DRUGS (1)
  1. FENTANYL [Suspect]
     Route: 048

REACTIONS (1)
  - Death [Fatal]
